FAERS Safety Report 22285364 (Version 2)
Quarter: 2023Q2

REPORT INFORMATION
  Report Type: Report from Study
  Country: US (occurrence: US)
  Receive Date: 20230504
  Receipt Date: 20230606
  Transmission Date: 20230721
  Serious: Yes (Other)
  Sender: FDA-Public Use
  Company Number: US-BAYER-2023A043674

PATIENT
  Age: 44 Year
  Sex: Male

DRUGS (2)
  1. STIVARGA [Suspect]
     Active Substance: REGORAFENIB
     Indication: Colon cancer
     Dosage: 80 MG, QD (FOR 21 DAYS ON, 7 DAYS OFF)
     Route: 048
     Dates: start: 20230327
  2. STIVARGA [Suspect]
     Active Substance: REGORAFENIB
     Indication: Colon cancer
     Dosage: 120 MG, QD
     Dates: start: 20230424

REACTIONS (15)
  - Heart rate increased [Recovering/Resolving]
  - Skin warm [Not Recovered/Not Resolved]
  - Blood pressure increased [Recovering/Resolving]
  - Flushing [Not Recovered/Not Resolved]
  - Exercise tolerance decreased [Recovering/Resolving]
  - Asthenia [None]
  - Nausea [Unknown]
  - Dry mouth [Unknown]
  - Blood pressure increased [Unknown]
  - Fatigue [Not Recovered/Not Resolved]
  - Off label use [None]
  - Nausea [Recovering/Resolving]
  - Pain [Unknown]
  - Decreased appetite [Unknown]
  - Pain [Not Recovered/Not Resolved]

NARRATIVE: CASE EVENT DATE: 20230327
